FAERS Safety Report 6433777-4 (Version None)
Quarter: 2009Q4

REPORT INFORMATION
  Report Type: 
  Country: None (occurrence: None)
  Receive Date: 20091110
  Receipt Date: 20091029
  Transmission Date: 20100525
  Serious: No
  Sender: FDA-Public Use
  Company Number: US-BAYER-200933729NA

PATIENT
  Age: 24 Year
  Sex: Female

DRUGS (1)
  1. YAZ [Suspect]
     Indication: CONTRACEPTION

REACTIONS (3)
  - BREAST TENDERNESS [None]
  - PREGNANCY ON ORAL CONTRACEPTIVE [None]
  - VAGINAL HAEMORRHAGE [None]
